FAERS Safety Report 24389111 (Version 2)
Quarter: 2024Q4

REPORT INFORMATION
  Report Type: Report from Study
  Country: US (occurrence: US)
  Receive Date: 20241002
  Receipt Date: 20241014
  Transmission Date: 20250115
  Serious: Yes (Other)
  Sender: ABBVIE
  Company Number: US-ABBVIE-5945222

PATIENT
  Sex: Female

DRUGS (1)
  1. HUMIRA [Suspect]
     Active Substance: ADALIMUMAB
     Indication: Hidradenitis
     Route: 058
     Dates: start: 20231031

REACTIONS (5)
  - Foot deformity [Unknown]
  - Hidradenitis [Recovering/Resolving]
  - Weight increased [Unknown]
  - Pain in extremity [Recovering/Resolving]
  - Rash [Recovering/Resolving]
